FAERS Safety Report 10514676 (Version 2)
Quarter: 2014Q4

REPORT INFORMATION
  Report Type: Report from Study
  Country: US (occurrence: US)
  Receive Date: 20141013
  Receipt Date: 20141029
  Transmission Date: 20150528
  Serious: Yes (Hospitalization)
  Sender: FDA-Public Use
  Company Number: US-ACTELION-A-NJ2014-106215

PATIENT
  Age: 39 Year
  Sex: Female

DRUGS (2)
  1. REVATIO [Concomitant]
     Active Substance: SILDENAFIL CITRATE
  2. MACITENTAN [Suspect]
     Active Substance: MACITENTAN
     Indication: COR PULMONALE CHRONIC
     Dosage: 10 MG, QD
     Route: 048
     Dates: start: 20140612

REACTIONS (5)
  - Blood potassium decreased [Unknown]
  - Cystitis [Unknown]
  - Confusional state [Unknown]
  - Urinary tract infection [Unknown]
  - Chest pain [Unknown]

NARRATIVE: CASE EVENT DATE: 20140924
